FAERS Safety Report 12095673 (Version 1)
Quarter: 2016Q1

REPORT INFORMATION
  Report Type: Spontaneous
  Country: US (occurrence: US)
  Receive Date: 20160219
  Receipt Date: 20160219
  Transmission Date: 20160526
  Serious: No
  Sender: FDA-Public Use
  Company Number: US-ALLERGAN-1502977US

PATIENT
  Sex: Female

DRUGS (1)
  1. TAZORAC [Suspect]
     Active Substance: TAZAROTENE
     Indication: SKIN HYPERPIGMENTATION
     Dosage: UNK
     Route: 061
     Dates: start: 201501, end: 201502

REACTIONS (2)
  - Off label use [Unknown]
  - Therapeutic response decreased [Unknown]
